FAERS Safety Report 14941308 (Version 1)
Quarter: 2018Q2

REPORT INFORMATION
  Report Type: Spontaneous
  Country: GB (occurrence: GB)
  Receive Date: 20180526
  Receipt Date: 20180526
  Transmission Date: 20180711
  Serious: Yes (Hospitalization)
  Sender: FDA-Public Use
  Company Number: GB-TEVA-2018-GB-897482

PATIENT
  Sex: Male

DRUGS (15)
  1. SODIUM PIDOLATE [Concomitant]
  2. DIGOXIN. [Concomitant]
     Active Substance: DIGOXIN
     Dosage: 125 MICROGRAM DAILY;
     Route: 065
  3. HALOPERIDOL. [Concomitant]
     Active Substance: HALOPERIDOL
     Dosage: 1000 MICROGRAM DAILY;
     Route: 065
  4. PHENYTOIN. [Suspect]
     Active Substance: PHENYTOIN
     Dosage: 600 MILLIGRAM DAILY; RE-STARTED AT A LOWER DOSE 300MG OD WHEN LEVELS IN RANGE
     Route: 065
  5. WARFARIN [Suspect]
     Active Substance: WARFARIN
     Route: 065
  6. METOPROLOL. [Concomitant]
     Active Substance: METOPROLOL
     Dosage: 150 MILLIGRAM DAILY;
     Route: 065
  7. MST CONTINUS [Concomitant]
     Active Substance: MORPHINE SULFATE
     Dosage: 60 MILLIGRAM DAILY;
  8. CLOBAZAM [Concomitant]
     Active Substance: CLOBAZAM
     Dosage: 20 MILLIGRAM DAILY;
     Route: 065
  9. CALCIUM AND COLECALCIFEROL [Concomitant]
  10. GLYCERYL TRINITRATE [Concomitant]
     Active Substance: NITROGLYCERIN
     Dosage: 400 MICROGRAM DAILY;
     Route: 060
  11. SERTRALINE [Concomitant]
     Active Substance: SERTRALINE HYDROCHLORIDE
     Dosage: 50 MILLIGRAM DAILY;
     Route: 065
  12. PRAVASTATIN. [Concomitant]
     Active Substance: PRAVASTATIN
     Dosage: 40 MILLIGRAM DAILY;
     Route: 065
  13. FOLIC ACID. [Concomitant]
     Active Substance: FOLIC ACID
     Dosage: 5 MILLIGRAM DAILY;
     Route: 065
  14. LANSOPRAZOLE. [Concomitant]
     Active Substance: LANSOPRAZOLE
     Dosage: 30 MILLIGRAM DAILY;
     Route: 065
  15. ORAMORPH [Concomitant]
     Active Substance: MORPHINE SULFATE
     Dosage: 10MG/5ML. 2.5ML - 5ML FOUR HOURLY EVERY MORNING

REACTIONS (3)
  - Toxicity to various agents [Unknown]
  - Blood albumin decreased [Recovering/Resolving]
  - International normalised ratio increased [Recovering/Resolving]
